FAERS Safety Report 7431855-4 (Version None)
Quarter: 2011Q2

REPORT INFORMATION
  Report Type: 
  Country: None (occurrence: None)
  Receive Date: 20110419
  Receipt Date: 20110419
  Transmission Date: 20111010
  Serious: Yes (Life-Threatening, Hospitalization)
  Sender: FDA-Public Use
  Company Number: None

PATIENT
  Age: 72 Year
  Sex: Male
  Weight: 86 kg

DRUGS (1)
  1. CEFAZOLIN [Suspect]
     Dosage: 2 GM ONCE IV
     Route: 042
     Dates: start: 20110110, end: 20110110

REACTIONS (1)
  - ANAPHYLACTIC REACTION [None]
